FAERS Safety Report 16376278 (Version 2)
Quarter: 2019Q2

REPORT INFORMATION
  Report Type: Spontaneous
  Country: US (occurrence: US)
  Receive Date: 20190531
  Receipt Date: 20190613
  Transmission Date: 20190711
  Serious: Yes (Hospitalization)
  Sender: FDA-Public Use
  Company Number: US-VERTEX PHARMACEUTICALS-2019-004856

PATIENT
  Age: 20 Year
  Sex: Male

DRUGS (29)
  1. CREON [Concomitant]
     Active Substance: PANCRELIPASE AMYLASE\PANCRELIPASE LIPASE\PANCRELIPASE PROTEASE
     Dosage: UNK
     Route: 048
  2. NASONEX [Concomitant]
     Active Substance: MOMETASONE FUROATE
     Dosage: 50 MICROGRAM
     Route: 045
  3. HYPERTONIC SALINE SOLUTION [Concomitant]
     Active Substance: SODIUM CHLORIDE
  4. VITAMIN K [Concomitant]
     Active Substance: PHYTONADIONE
  5. PERIACTIN [Concomitant]
     Active Substance: CYPROHEPTADINE HYDROCHLORIDE
     Dosage: 4 MG, BID
     Route: 048
  6. CHOLECALCIFEROL [Concomitant]
     Active Substance: CHOLECALCIFEROL
     Dosage: 4000 INTERNATIONAL UNIT, QD
     Route: 048
  7. ZENPEP [Concomitant]
     Active Substance: PANCRELIPASE AMYLASE\PANCRELIPASE LIPASE\PANCRELIPASE PROTEASE
     Dosage: 6 CAPSULES, TID
     Route: 048
  8. MEPHYTON [Concomitant]
     Active Substance: PHYTONADIONE
     Dosage: 5 MG, QD
     Route: 048
  9. TOPAMAX [Concomitant]
     Active Substance: TOPIRAMATE
     Dosage: 100 MG AT BEDTIME
     Route: 048
  10. FLONASE                            /00908302/ [Concomitant]
     Active Substance: MOMETASONE FUROATE
     Dosage: 2 SPRAYS, BID
  11. TOBI [Concomitant]
     Active Substance: TOBRAMYCIN
     Dosage: UNK
  12. PULMOZYME [Concomitant]
     Active Substance: DORNASE ALFA
     Dosage: 2.5 MG, NIGHTLY
     Route: 055
  13. PROZAC [Concomitant]
     Active Substance: FLUOXETINE HYDROCHLORIDE
     Dosage: 20 MG, NIGHTLY
     Route: 048
  14. SINGULAIR [Concomitant]
     Active Substance: MONTELUKAST SODIUM
     Dosage: 4 MG, QD
     Route: 048
  15. ZANTAC [Concomitant]
     Active Substance: RANITIDINE HYDROCHLORIDE
     Dosage: ONE-HALF TABLET, BID
     Dates: start: 20180521
  16. IMITREX [Concomitant]
     Active Substance: SUMATRIPTAN SUCCINATE
     Indication: HEADACHE
     Dosage: 100 MG, BID
     Route: 048
  17. CAYSTON [Concomitant]
     Active Substance: AZTREONAM
     Dosage: 1 MILLILITER (75 MG TOTAL), TID
     Route: 055
     Dates: start: 20180618
  18. PEG 3350 [Concomitant]
     Active Substance: POLYETHYLENE GLYCOL 3350
     Dosage: 17 GRAM PACKET, QD
     Route: 048
  19. SINGULAIR [Concomitant]
     Active Substance: MONTELUKAST SODIUM
     Dosage: 10 MG, NIGHTLY
     Route: 048
     Dates: start: 20190107
  20. ZITHROMAX [Concomitant]
     Active Substance: AZITHROMYCIN DIHYDRATE
     Dosage: 500 MG, QD (MON, WED, FRI)
     Route: 048
     Dates: start: 20180606
  21. PROAIR HFA [Concomitant]
     Active Substance: ALBUTEROL SULFATE
     Dosage: 90 MICROGRAM/PUFF, BID
     Route: 055
     Dates: start: 20181025
  22. IRON [Concomitant]
     Active Substance: IRON
     Dosage: 325 MG
     Route: 048
  23. LIORESAL [Concomitant]
     Active Substance: BACLOFEN
     Dosage: 20 MG, PRN
  24. KALYDECO [Suspect]
     Active Substance: IVACAFTOR
     Indication: CYSTIC FIBROSIS
     Dosage: 150 MG, BID
     Route: 048
     Dates: start: 20150114
  25. PULMOZYME [Concomitant]
     Active Substance: DORNASE ALFA
     Dosage: UNK, BID
     Route: 055
  26. RANITIDINE. [Concomitant]
     Active Substance: RANITIDINE
     Dosage: 150 MG
     Route: 048
  27. PAMELOR [Concomitant]
     Active Substance: NORTRIPTYLINE HYDROCHLORIDE
     Dosage: 50 MG AT BEDTIME
     Route: 048
  28. SODIUM CHLORIDE. [Concomitant]
     Active Substance: SODIUM CHLORIDE
     Dosage: 4 MILLILITER, BID
     Route: 055
     Dates: start: 20180518
  29. VITAMIN E                          /00110501/ [Concomitant]
     Active Substance: TOCOPHEROL
     Dosage: 400 UNK, QD
     Route: 048

REACTIONS (1)
  - Infective pulmonary exacerbation of cystic fibrosis [Recovering/Resolving]

NARRATIVE: CASE EVENT DATE: 201904
